FAERS Safety Report 7054812-9 (Version None)
Quarter: 2010Q4

REPORT INFORMATION
  Report Type: 
  Country: None (occurrence: None)
  Receive Date: 20101021
  Receipt Date: 20101013
  Transmission Date: 20110411
  Serious: Yes (Other)
  Sender: FDA-Public Use
  Company Number: US-BIOGENIDEC-2009BI015702

PATIENT
  Age: 45 Year
  Sex: Female
  Weight: 56 kg

DRUGS (2)
  1. TYSABRI [Suspect]
     Indication: MULTIPLE SCLEROSIS
     Route: 042
     Dates: start: 20080530, end: 20090601
  2. TYSABRI [Suspect]
     Route: 042
     Dates: start: 20100910

REACTIONS (3)
  - BREAST CANCER [None]
  - BREAST CYST [None]
  - HERPES ZOSTER [None]
